FAERS Safety Report 4542399-1 (Version None)
Quarter: 2004Q4

REPORT INFORMATION
  Report Type: 
  Country: None (occurrence: None)
  Receive Date: 20041230
  Receipt Date: 20041210
  Transmission Date: 20050328
  Serious: Yes (Death, Hospitalization)
  Sender: FDA-Public Use
  Company Number: US-ABBOTT-04P-163-0283117-00

PATIENT
  Sex: Female
  Weight: 67.6 kg

DRUGS (22)
  1. HUMIRA [Suspect]
     Indication: RHEUMATOID ARTHRITIS
     Dosage: 40 MG
     Route: 058
     Dates: start: 20010619, end: 20041130
  2. COSOPT [Concomitant]
     Indication: GLAUCOMA
     Route: 046
     Dates: start: 20030101
  3. COSOPT [Concomitant]
     Route: 050
     Dates: start: 20031201
  4. COSOPT [Concomitant]
     Route: 050
     Dates: start: 20030101
  5. COSOPT [Concomitant]
     Route: 050
     Dates: start: 20031201
  6. LATANOPROST [Concomitant]
     Indication: GLAUCOMA
     Route: 046
     Dates: start: 20020901
  7. LATANOPROST [Concomitant]
     Route: 050
     Dates: start: 20020901
  8. PANTOPRAZOLE SODIUM [Concomitant]
     Indication: DYSPEPSIA
     Route: 048
     Dates: start: 20020604
  9. PANTOPRAZOLE SODIUM [Concomitant]
     Route: 048
     Dates: start: 20020604
  10. TYLENOL PM [Concomitant]
     Indication: INSOMNIA
     Route: 048
     Dates: start: 19970109
  11. TYLENOL PM [Concomitant]
     Route: 048
     Dates: start: 19970109
  12. CALCIUM WITH VITAMIN D [Concomitant]
     Indication: OSTEOPOROSIS
     Route: 048
     Dates: start: 19971001
  13. CALCIUM WITH VITAMIN D [Concomitant]
     Route: 048
     Dates: start: 19971001
  14. DOXEPIN [Concomitant]
     Indication: INSOMNIA
     Route: 048
     Dates: start: 20010801
  15. DOXEPIN [Concomitant]
     Route: 048
     Dates: start: 20010801
  16. ALENDRONATE SODIUM [Concomitant]
     Indication: OSTEOPOROSIS
     Route: 048
     Dates: start: 19980205
  17. ALENDRONATE SODIUM [Concomitant]
     Route: 048
     Dates: start: 19980205, end: 20040601
  18. LUMBAR SUPPORT [Concomitant]
     Indication: NECROSIS
     Dates: start: 20020611
  19. LUMBAR SUPPORT [Concomitant]
     Dates: start: 20020611
  20. RISEDRONATE SODIUM [Concomitant]
     Indication: OSTEOPOROSIS
     Route: 048
     Dates: start: 20040601
  21. DYAZIDE [Concomitant]
     Indication: MENIERE'S DISEASE
     Route: 048
     Dates: start: 20040820
  22. METHOTREXATE [Concomitant]
     Indication: RHEUMATOID ARTHRITIS
     Route: 058
     Dates: start: 20030826

REACTIONS (3)
  - BRONCHITIS [None]
  - HISTOPLASMOSIS [None]
  - THERAPY NON-RESPONDER [None]
